FAERS Safety Report 5953383-5 (Version None)
Quarter: 2008Q4

REPORT INFORMATION
  Report Type: 
  Country: None (occurrence: None)
  Receive Date: 20081031
  Receipt Date: 20080731
  Transmission Date: 20090506
  Serious: No
  Sender: FDA-Public Use
  Company Number: 2007PV033844

PATIENT
  Age: 30 Year
  Sex: Female

DRUGS (7)
  1. SYMLIN [Suspect]
     Indication: TYPE 1 DIABETES MELLITUS
     Dosage: 60 MCG; TID; SC, 60 MCG; TID; SC, 45 MCG; TID; SC, 30 MCG; TID; SC, 15 MCG; TID; SC
     Route: 058
     Dates: start: 20070125, end: 20070101
  2. SYMLIN [Suspect]
     Indication: TYPE 1 DIABETES MELLITUS
     Dosage: 60 MCG; TID; SC, 60 MCG; TID; SC, 45 MCG; TID; SC, 30 MCG; TID; SC, 15 MCG; TID; SC
     Route: 058
     Dates: start: 20070101, end: 20070201
  3. SYMLIN [Suspect]
     Indication: TYPE 1 DIABETES MELLITUS
     Dosage: 60 MCG; TID; SC, 60 MCG; TID; SC, 45 MCG; TID; SC, 30 MCG; TID; SC, 15 MCG; TID; SC
     Route: 058
     Dates: start: 20070201, end: 20070201
  4. SYMLIN [Suspect]
     Indication: TYPE 1 DIABETES MELLITUS
     Dosage: 60 MCG; TID; SC, 60 MCG; TID; SC, 45 MCG; TID; SC, 30 MCG; TID; SC, 15 MCG; TID; SC
     Route: 058
     Dates: start: 20070201, end: 20071001
  5. SYMLIN [Suspect]
     Indication: TYPE 1 DIABETES MELLITUS
     Dosage: 60 MCG; TID; SC, 60 MCG; TID; SC, 45 MCG; TID; SC, 30 MCG; TID; SC, 15 MCG; TID; SC
     Route: 058
     Dates: start: 20071201
  6. LANTUS [Concomitant]
  7. HUMALOG [Concomitant]

REACTIONS (3)
  - DRUG EXPOSURE DURING PREGNANCY [None]
  - DRUG EXPOSURE VIA BREAST MILK [None]
  - NAUSEA [None]
